FAERS Safety Report 5690111-5 (Version None)
Quarter: 2008Q1

REPORT INFORMATION
  Report Type: 
  Country: None (occurrence: None)
  Receive Date: 20080331
  Receipt Date: 20080331
  Transmission Date: 20080703
  Serious: Yes (Hospitalization)
  Sender: FDA-Public Use
  Company Number: None

PATIENT
  Age: 83 Year
  Sex: Female
  Weight: 73.1198 kg

DRUGS (1)
  1. RANOLAZINE [Suspect]
     Dosage: 500 MG BID PO
     Route: 048
     Dates: start: 20080312, end: 20080326

REACTIONS (6)
  - CONTUSION [None]
  - DIZZINESS [None]
  - FALL [None]
  - HEAD INJURY [None]
  - MYOCARDIAL ISCHAEMIA [None]
  - TREMOR [None]
